FAERS Safety Report 13814057 (Version 1)
Quarter: 2017Q3

REPORT INFORMATION
  Report Type: Spontaneous
  Country: FR (occurrence: FR)
  Receive Date: 20170731
  Receipt Date: 20170731
  Transmission Date: 20171127
  Serious: Yes (Hospitalization, Other)
  Sender: FDA-Public Use
  Company Number: FR-BRISTOL-MYERS SQUIBB COMPANY-BMS-2017-064037

PATIENT
  Sex: Female

DRUGS (1)
  1. COUMADINE [Suspect]
     Active Substance: WARFARIN SODIUM
     Indication: ATRIAL FIBRILLATION
     Dosage: UNK
     Route: 048
     Dates: end: 20170419

REACTIONS (6)
  - Headache [Recovered/Resolved]
  - Subdural haematoma [Recovered/Resolved]
  - Brain herniation [Recovered/Resolved]
  - Balance disorder [Recovered/Resolved]
  - Craniotomy [Unknown]
  - International normalised ratio increased [Recovered/Resolved]
